FAERS Safety Report 19972861 (Version 2)
Quarter: 2021Q4

REPORT INFORMATION
  Report Type: Spontaneous
  Country: FR (occurrence: FR)
  Receive Date: 20211019
  Receipt Date: 20211118
  Transmission Date: 20220303
  Serious: Yes (Death, Other)
  Sender: FDA-Public Use
  Company Number: FR-009507513-2110FRA003692

PATIENT
  Sex: Male

DRUGS (3)
  1. KEYTRUDA [Suspect]
     Active Substance: PEMBROLIZUMAB
     Indication: Squamous cell carcinoma of head and neck
  2. PLATINUM [Concomitant]
     Active Substance: PLATINUM
     Indication: Squamous cell carcinoma of head and neck
  3. FLUOROURACIL 5 [Concomitant]
     Indication: Squamous cell carcinoma of head and neck

REACTIONS (1)
  - Death [Fatal]
